FAERS Safety Report 8568438 (Version 2)
Quarter: 2012Q4

REPORT INFORMATION
  Report Type: 
  Country: JP (occurrence: JP)
  Receive Date: 20120518
  Receipt Date: 20121120
  Transmission Date: 20130627
  Serious: Yes (Hospitalization)
  Sender: FDA-Public Use
  Company Number: JP-SANOFI-AVENTIS-2012SA033992

PATIENT
  Age: 77 Year
  Sex: Female

DRUGS (8)
  1. AMARYL [Suspect]
     Indication: DIABETES
     Route: 048
     Dates: start: 20021113, end: 20110216
  2. AMARYL [Suspect]
     Indication: BLOOD SUGAR LEVEL FLUCTUATION
     Route: 048
     Dates: start: 20021113, end: 20110216
  3. BAYASPIRIN [Concomitant]
     Indication: PROPHYLAXIS
     Route: 048
     Dates: start: 20061012
  4. BASEN [Concomitant]
     Indication: DIABETES MELLITUS
     Route: 048
     Dates: start: 20041028, end: 20110216
  5. BLOPRESS [Concomitant]
     Indication: HYPERTENSION
     Route: 048
     Dates: start: 20030610
  6. CARDENALIN [Concomitant]
     Indication: HYPERTENSION
     Route: 048
     Dates: start: 20040112
  7. AMLODIN [Concomitant]
     Indication: HYPERTENSION
     Route: 048
     Dates: start: 20070301
  8. BENET [Concomitant]
     Indication: OSTEOPOROSIS
     Route: 048
     Dates: start: 20040902

REACTIONS (7)
  - Hypoglycaemic encephalopathy [Recovered/Resolved]
  - Coma [Recovered/Resolved]
  - Mobility decreased [Recovered/Resolved]
  - Depressed level of consciousness [Recovered/Resolved]
  - Hemiplegia [Recovered/Resolved]
  - Syncope [Recovered/Resolved]
  - Hypoglycaemia [Recovered/Resolved]
